FAERS Safety Report 8421835-4 (Version None)
Quarter: 2012Q2

REPORT INFORMATION
  Report Type: 
  Country: None (occurrence: None)
  Receive Date: 20120605
  Receipt Date: 20120605
  Transmission Date: 20120825
  Serious: Yes (Other)
  Sender: FDA-Public Use
  Company Number: None

PATIENT
  Age: 77 Year
  Sex: Female
  Weight: 65.7716 kg

DRUGS (1)
  1. NITROFURANTOIN [Suspect]
     Indication: URINARY TRACT INFECTION
     Dosage: 100 MG CAPS 4X DAILY
     Dates: start: 20120511, end: 20120514

REACTIONS (8)
  - HYPERHIDROSIS [None]
  - CHROMATURIA [None]
  - NAUSEA [None]
  - PARAESTHESIA [None]
  - PERIPHERAL COLDNESS [None]
  - DECREASED APPETITE [None]
  - INSOMNIA [None]
  - CARDIOVASCULAR DISORDER [None]
